FAERS Safety Report 20438310 (Version 4)
Quarter: 2022Q3

REPORT INFORMATION
  Report Type: Spontaneous
  Country: PL (occurrence: PL)
  Receive Date: 20220207
  Receipt Date: 20220712
  Transmission Date: 20221026
  Serious: Yes (Other)
  Sender: FDA-Public Use
  Company Number: PL-009507513-2202POL000874

PATIENT
  Sex: Female

DRUGS (1)
  1. PEMBROLIZUMAB [Suspect]
     Active Substance: PEMBROLIZUMAB
     Indication: Metastatic malignant melanoma
     Dosage: UNK, EVERY 21 DAYS
     Dates: start: 20161107, end: 202011

REACTIONS (3)
  - Hepatotoxicity [Unknown]
  - Thyroid disorder [Unknown]
  - Rash pruritic [Unknown]
